FAERS Safety Report 19030799 (Version 3)
Quarter: 2021Q2

REPORT INFORMATION
  Report Type: Report from Study
  Country: BR (occurrence: BR)
  Receive Date: 20210319
  Receipt Date: 20210414
  Transmission Date: 20210717
  Serious: Yes (Other)
  Sender: FDA-Public Use
  Company Number: NVSC2021BR061841

PATIENT
  Sex: Male

DRUGS (6)
  1. GALVUS MET [Suspect]
     Active Substance: METFORMIN HYDROCHLORIDE\VILDAGLIPTIN
     Indication: TYPE 2 DIABETES MELLITUS
     Dosage: 1 DF, BID (1 IN MORNING  AND 1 IN NIGHT, 10 YEAR AGO 500/50 MG)
     Route: 048
  2. GALVUS MET [Suspect]
     Active Substance: METFORMIN HYDROCHLORIDE\VILDAGLIPTIN
     Dosage: 1 DF, BID (1 IN MORNING  AND 1 IN NIGHT, 10 YEAR AGO 500/50 MG)
     Route: 048
  3. GLAUCOTRAT [Concomitant]
     Active Substance: TIMOLOL MALEATE
     Indication: SURGERY
     Dosage: 1 DRP, QD, APPROXIMATELY 2 YEARS AGO, BOTTLE WITH DROPS
     Route: 031
  4. GINKGO BILOBA [Concomitant]
     Active Substance: GINKGO
     Indication: DIZZINESS
     Dosage: 2 DF, QD, START A LONG TIME AGO, UNABLE TO SPECIFY
     Route: 048
  5. GALVUS MET [Suspect]
     Active Substance: METFORMIN HYDROCHLORIDE\VILDAGLIPTIN
     Dosage: 1 DF, BID (1 IN MORNING  AND 1 IN NIGHT, 10 YEAR AGO 1000/50 MG)
     Route: 048
  6. AZUKON [Concomitant]
     Active Substance: GLICLAZIDE
     Indication: DIABETES MELLITUS
     Dosage: 2 DF, QD, START A LONG TIME AGO
     Route: 048

REACTIONS (6)
  - Cataract [Recovered/Resolved]
  - Blindness [Unknown]
  - Intraocular pressure increased [Recovered/Resolved]
  - Glaucoma [Unknown]
  - Fall [Recovered/Resolved]
  - Asthenia [Recovered/Resolved]
